FAERS Safety Report 5527909-X (Version None)
Quarter: 2007Q4

REPORT INFORMATION
  Report Type: 
  Country: None (occurrence: None)
  Receive Date: 20071123
  Receipt Date: 20071120
  Transmission Date: 20080405
  Serious: Yes (Death, Hospitalization)
  Sender: FDA-Public Use
  Company Number: 2007SP011723

PATIENT
  Age: 24 Year
  Sex: Male
  Weight: 43 kg

DRUGS (8)
  1. TEMODAL [Suspect]
     Indication: MEDULLOBLASTOMA RECURRENT
     Dosage: PO; 200 MG/M2;QD; PO
     Route: 048
     Dates: start: 20060702, end: 20060930
  2. TEMODAL [Suspect]
     Indication: MEDULLOBLASTOMA RECURRENT
     Dosage: PO; 200 MG/M2;QD; PO
     Route: 048
     Dates: start: 20061024, end: 20061028
  3. TEMODAL [Suspect]
     Indication: MEDULLOBLASTOMA RECURRENT
     Dosage: PO; 200 MG/M2;QD; PO
     Route: 048
     Dates: start: 20061121, end: 20061125
  4. RANIMUSTINE [Concomitant]
  5. METHOTREXATE [Concomitant]
  6. IFOSFAMIDE [Concomitant]
  7. LOXONIN [Concomitant]
  8. PREDNISOLONE [Concomitant]

REACTIONS (5)
  - DISEASE PROGRESSION [None]
  - NEOPLASM PROGRESSION [None]
  - PNEUMONIA [None]
  - RESPIRATORY DISORDER [None]
  - STAPHYLOCOCCAL INFECTION [None]
